FAERS Safety Report 12877670 (Version 2)
Quarter: 2016Q4

REPORT INFORMATION
  Report Type: Spontaneous
  Country: US (occurrence: US)
  Receive Date: 20161024
  Receipt Date: 20161025
  Transmission Date: 20170207
  Serious: No
  Sender: FDA-Public Use
  Company Number: US-PFIZER INC-2016488918

PATIENT
  Age: 79 Year
  Sex: Female

DRUGS (1)
  1. SERTRALINE HCL [Suspect]
     Active Substance: SERTRALINE HYDROCHLORIDE
     Dosage: 50 MG, UNK
     Dates: start: 20161014

REACTIONS (12)
  - Muscle twitching [Unknown]
  - Feeling abnormal [Unknown]
  - Pain in extremity [Unknown]
  - Insomnia [Unknown]
  - Drug ineffective [Unknown]
  - Heart rate increased [Unknown]
  - Decreased appetite [Unknown]
  - Tremor [Unknown]
  - Intentional product misuse [Unknown]
  - Yawning [Unknown]
  - Tinnitus [Unknown]
  - Balance disorder [Unknown]

NARRATIVE: CASE EVENT DATE: 201610
